FAERS Safety Report 4798113-8 (Version None)
Quarter: 2005Q4

REPORT INFORMATION
  Report Type: 
  Country: None (occurrence: None)
  Receive Date: 20051011
  Receipt Date: 20051011
  Transmission Date: 20060501
  Serious: Yes (Other)
  Sender: FDA-Public Use
  Company Number: None

PATIENT
  Age: 48 Year
  Sex: Female

DRUGS (2)
  1. FENTANYL [Suspect]
     Indication: SPINAL LAMINECTOMY
     Dosage: 1 Q OD
     Dates: start: 20050301
  2. DURAGESIC PATCH (BRAND) [Concomitant]

REACTIONS (1)
  - MIGRAINE [None]
